FAERS Safety Report 15776283 (Version 8)
Quarter: 2019Q1

REPORT INFORMATION
  Report Type: Report from Study
  Country: FR (occurrence: FR)
  Receive Date: 20181231
  Receipt Date: 20190222
  Transmission Date: 20190417
  Serious: Yes (Hospitalization)
  Sender: FDA-Public Use
  Company Number: FR-REGENERON PHARMACEUTICALS, INC.-2018-49723

PATIENT

DRUGS (7)
  1. MOVICOL [Concomitant]
     Active Substance: POLYETHYLENE GLYCOL 3350\POTASSIUM CHLORIDE\SODIUM BICARBONATE\SODIUM CHLORIDE
     Indication: CONSTIPATION PROPHYLAXIS
     Dosage: 2 PACKET, PRN
     Route: 048
     Dates: start: 20181121
  2. IPILIMUMAB [Suspect]
     Active Substance: IPILIMUMAB
     Indication: NON-SMALL CELL LUNG CANCER
     Dosage: 50 MG, Q6W
     Route: 042
     Dates: start: 20181214
  3. OXYCONTIN [Concomitant]
     Active Substance: OXYCODONE HYDROCHLORIDE
     Indication: PAIN IN EXTREMITY
     Dosage: 30 MG, BID
     Route: 048
     Dates: start: 20181121, end: 20181221
  4. CEMIPLIMAB [Suspect]
     Active Substance: CEMIPLIMAB
     Indication: NON-SMALL CELL LUNG CANCER METASTATIC
     Dosage: 350 MG, Q3W
     Route: 042
     Dates: start: 20181214
  5. DOLIPRANE [Concomitant]
     Active Substance: ACETAMINOPHEN
     Indication: PAIN IN EXTREMITY
     Dosage: 1 G, PRN
     Route: 048
     Dates: start: 20181114
  6. NICOPATCH [Concomitant]
     Active Substance: NICOTINE
     Indication: SMOKING CESSATION THERAPY
     Dosage: 1 PATCH, QD
     Route: 061
     Dates: start: 20181128
  7. OXYNORM [Concomitant]
     Active Substance: OXYCODONE HYDROCHLORIDE
     Indication: PAIN IN EXTREMITY
     Dosage: 10 MG, QD
     Route: 048
     Dates: start: 20181121, end: 20181221

REACTIONS (2)
  - Rash [Recovered/Resolved]
  - Hyperaesthesia [Recovered/Resolved]

NARRATIVE: CASE EVENT DATE: 20181222
